FAERS Safety Report 5508936-5 (Version None)
Quarter: 2007Q4

REPORT INFORMATION
  Report Type: 
  Country: None (occurrence: None)
  Receive Date: 20071031
  Receipt Date: 20070808
  Transmission Date: 20080405
  Serious: No
  Sender: FDA-Public Use
  Company Number: 2007PV033267

PATIENT
  Age: 64 Year
  Sex: Male

DRUGS (10)
  1. SYMLIN [Suspect]
     Indication: TYPE 2 DIABETES MELLITUS
     Dosage: 60 MCG;TID;SC
     Route: 058
     Dates: start: 20070808
  2. LANTUS [Concomitant]
  3. NOVOLOG [Concomitant]
  4. LASIX [Concomitant]
  5. METOLAZONE [Concomitant]
  6. ALLOPURINOL [Concomitant]
  7. ZIAC [Concomitant]
  8. LISINOPRIL [Concomitant]
  9. NIASPAN [Concomitant]
  10. ZOCOR [Concomitant]

REACTIONS (1)
  - BLOOD GLUCOSE INCREASED [None]
